FAERS Safety Report 6841275-9 (Version None)
Quarter: 2010Q3

REPORT INFORMATION
  Report Type: 
  Country: None (occurrence: None)
  Receive Date: 20100714
  Receipt Date: 20100702
  Transmission Date: 20110219
  Serious: Yes (Hospitalization)
  Sender: FDA-Public Use
  Company Number: FR-B.I. PHARMACEUTICALS,INC./RIDGEFIELD-2010-FF-00552FF

PATIENT
  Sex: Female

DRUGS (4)
  1. VIRAMUNE [Suspect]
     Indication: HIV INFECTION
     Route: 048
     Dates: start: 20100201, end: 20100220
  2. TRUVADA [Concomitant]
     Indication: HIV INFECTION
     Dates: start: 20060601
  3. KALETRA [Concomitant]
     Indication: HIV INFECTION
     Dates: start: 20060501, end: 20100201
  4. KALETRA [Concomitant]
     Dates: start: 20100220

REACTIONS (4)
  - COAGULATION FACTOR DECREASED [None]
  - CYTOLYTIC HEPATITIS [None]
  - RASH [None]
  - SALPINGITIS [None]
